FAERS Safety Report 12963762 (Version 1)
Quarter: 2016Q4

REPORT INFORMATION
  Report Type: Spontaneous
  Country: US (occurrence: US)
  Receive Date: 20161122
  Receipt Date: 20161122
  Transmission Date: 20170207
  Serious: No
  Sender: FDA-Public Use
  Company Number: US-GLAXOSMITHKLINE-US2016170670

PATIENT
  Age: 53 Year
  Sex: Female

DRUGS (1)
  1. TRANSDERM SCOP [Suspect]
     Active Substance: SCOPOLAMINE
     Indication: NAUSEA
     Dosage: UNK (HAD BEEN USING THEM NOW CONTINUOUSLY FOR AT LEAST 4 YEARS)

REACTIONS (5)
  - Incorrect drug administration duration [Unknown]
  - Aneurysm [Unknown]
  - Motion sickness [Unknown]
  - Weight decreased [Unknown]
  - Abdominal adhesions [Unknown]
